FAERS Safety Report 5583445-6 (Version None)
Quarter: 2008Q1

REPORT INFORMATION
  Report Type: 
  Country: None (occurrence: None)
  Receive Date: 20080107
  Receipt Date: 20071226
  Transmission Date: 20080703
  Serious: Yes (Death, Hospitalization)
  Sender: FDA-Public Use
  Company Number: JP-AMGEN-US254983

PATIENT
  Sex: Male
  Weight: 72 kg

DRUGS (13)
  1. ENBREL [Suspect]
     Indication: RHEUMATOID ARTHRITIS
     Route: 058
     Dates: start: 20070205, end: 20070809
  2. OPALMON [Suspect]
     Dosage: UNKNOWN
     Route: 048
  3. AZULFIDINE EN-TABS [Suspect]
  4. FOLIAMIN [Concomitant]
     Route: 048
     Dates: start: 20070119
  5. PREDONINE [Concomitant]
     Indication: RHEUMATOID ARTHRITIS
     Dosage: 15 MG; UNSPECIFIED FREQUENCY
     Route: 048
     Dates: start: 20040101
  6. PREDONINE [Concomitant]
     Route: 048
     Dates: start: 20070119
  7. SELBEX [Concomitant]
  8. ETODOLAC [Concomitant]
  9. PYDOXAL [Concomitant]
  10. BUCILLAMINE [Concomitant]
     Dosage: 200 MG; UNSPECIFIED FREQUENCY
     Dates: start: 20040101
  11. LOXOPROFEN [Concomitant]
     Dosage: 3 TABLETS; UNSPECIFIED FREAUENCY
     Dates: start: 20040101
  12. METHOTREXATE [Concomitant]
     Indication: RHEUMATOID ARTHRITIS
     Route: 048
     Dates: start: 20070119, end: 20070318
  13. ISCOTIN [Concomitant]

REACTIONS (4)
  - CONDITION AGGRAVATED [None]
  - ECZEMA [None]
  - GASTROINTESTINAL PERFORATION [None]
  - PETECHIAE [None]
